FAERS Safety Report 8861529 (Version 1)
Quarter: 2012Q4

REPORT INFORMATION
  Report Type: 
  Country: US (occurrence: US)
  Receive Date: 20121025
  Receipt Date: 20121025
  Transmission Date: 20130627
  Serious: No
  Sender: FDA-Public Use
  Company Number: US-AMGEN-USASP2012016640

PATIENT
  Sex: Female
  Weight: 61.22 kg

DRUGS (12)
  1. ENBREL [Suspect]
     Indication: PRODUCT USED FOR UNKNOWN INDICATION
     Dosage: 50 mg, qwk
     Route: 058
  2. NABUMETONE [Concomitant]
     Dosage: 500 mg, UNK
  3. VITAMIN D /00107901/ [Concomitant]
     Dosage: 1000 IU, UNK
  4. ALBUTEROL                          /00139501/ [Concomitant]
     Dosage: 90 mug, UNK
  5. AGGRENOX [Concomitant]
     Dosage: UNK
  6. LEXAPRO [Concomitant]
     Dosage: 10 mg, UNK
  7. VITAMIN C                          /00008001/ [Concomitant]
     Dosage: 500 mg, UNK
  8. OYSTER SHELL CALCI [Concomitant]
     Dosage: 500 mg, UNK
  9. ASMANEX [Concomitant]
     Dosage: 110 mug, UNK
  10. METOPROLOL [Concomitant]
     Dosage: 100 mg, UNK
  11. NEXIUM                             /01479302/ [Concomitant]
     Dosage: 40 mg, UNK
  12. LORTAB                             /00607101/ [Concomitant]
     Dosage: UNK

REACTIONS (2)
  - Respiratory tract infection [Unknown]
  - Nasopharyngitis [Unknown]
